FAERS Safety Report 23627890 (Version 1)
Quarter: 2024Q1

REPORT INFORMATION
  Report Type: Spontaneous
  Country: NL (occurrence: NL)
  Receive Date: 20240313
  Receipt Date: 20240313
  Transmission Date: 20240410
  Serious: Yes (Other)
  Sender: FDA-Public Use
  Company Number: None

PATIENT
  Age: 64 Year
  Sex: Male
  Weight: 65 kg

DRUGS (3)
  1. ATORVASTATIN [Suspect]
     Active Substance: ATORVASTATIN
     Indication: Hypercholesterolaemia
     Dosage: BRAND NAME NOT SPECIFIED
     Route: 065
     Dates: start: 20231120, end: 20240110
  2. METOPROLOL  (SUCCINATE) [Concomitant]
     Indication: Product used for unknown indication
     Dosage: MODIFIED-RELEASE TABLET,/ BRAND NAME NOT SPECIFIED
     Route: 065
  3. ACETYLSALICYLIC ACID/ACETYLSALICYLIC ACID CARDIO RP [Concomitant]
     Indication: Product used for unknown indication
     Dosage: 80 MG,  /  DISP TABLET 80MG - NON-CURRENT DRUG

REACTIONS (9)
  - Mental impairment [Recovering/Resolving]
  - Balance disorder [Recovering/Resolving]
  - Headache [Recovering/Resolving]
  - Dizziness [Recovering/Resolving]
  - Sensory overload [Recovering/Resolving]
  - Photophobia [Recovering/Resolving]
  - Fatigue [Recovering/Resolving]
  - Depressed mood [Recovering/Resolving]
  - Listless [Recovering/Resolving]
